FAERS Safety Report 14258617 (Version 2)
Quarter: 2017Q4

REPORT INFORMATION
  Report Type: Report from Study
  Country: US (occurrence: US)
  Receive Date: 20171207
  Receipt Date: 20171220
  Transmission Date: 20180321
  Serious: Yes (Death, Other)
  Sender: FDA-Public Use
  Company Number: US-ROCHE-2035247

PATIENT
  Age: 60 Year
  Sex: Male
  Weight: 104.6 kg

DRUGS (7)
  1. CORTEF [Concomitant]
     Active Substance: HYDROCORTISONE
  2. ATIVAN [Concomitant]
     Active Substance: LORAZEPAM
  3. ATEZOLIZUMAB. [Suspect]
     Active Substance: ATEZOLIZUMAB
     Indication: RENAL CELL CARCINOMA
     Dosage: LAST TREATMENT BEING ADMINISTRATED ON 11/JUL/2017
     Route: 042
     Dates: start: 20160922, end: 20171003
  4. ACETAMINOPHEN. [Concomitant]
     Active Substance: ACETAMINOPHEN
  5. DIPHENHYDRAMINE. [Concomitant]
     Active Substance: DIPHENHYDRAMINE
  6. PROZAC [Concomitant]
     Active Substance: FLUOXETINE HYDROCHLORIDE
  7. BEVACIZUMAB. [Suspect]
     Active Substance: BEVACIZUMAB
     Indication: RENAL CELL CARCINOMA
     Dosage: LAST TREATMENT BEING ADMINISTRATED ON 11/JUL/2017
     Route: 042
     Dates: start: 20160922, end: 20170822

REACTIONS (7)
  - Death [Fatal]
  - Fatigue [Unknown]
  - Adrenal insufficiency [Unknown]
  - Fall [Unknown]
  - Aspartate aminotransferase increased [Unknown]
  - Anaemia [Unknown]
  - Alanine aminotransferase increased [Unknown]

NARRATIVE: CASE EVENT DATE: 20170720
